FAERS Safety Report 9165360 (Version 4)
Quarter: 2013Q2

REPORT INFORMATION
  Report Type: Spontaneous
  Country: JP (occurrence: JP)
  Receive Date: 20130315
  Receipt Date: 20130624
  Transmission Date: 20140414
  Serious: Yes (Death, Other)
  Sender: FDA-Public Use
  Company Number: PHHY2013JP024652

PATIENT
  Age: 20 Year
  Sex: Male

DRUGS (2)
  1. NEORAL [Suspect]
     Indication: PROPHYLAXIS AGAINST GRAFT VERSUS HOST DISEASE
  2. METHOTREXATE [Suspect]
     Indication: PROPHYLAXIS AGAINST GRAFT VERSUS HOST DISEASE

REACTIONS (9)
  - Multi-organ failure [Fatal]
  - Thrombotic microangiopathy [Unknown]
  - Cystitis haemorrhagic [Unknown]
  - Venoocclusive liver disease [Unknown]
  - Acute graft versus host disease [Unknown]
  - Staphylococcal sepsis [Unknown]
  - Transplant failure [Unknown]
  - Delayed engraftment [Unknown]
  - Drug ineffective [Unknown]
